FAERS Safety Report 8428033-9 (Version None)
Quarter: 2012Q2

REPORT INFORMATION
  Report Type: 
  Country: None (occurrence: None)
  Receive Date: 20120611
  Receipt Date: 20120601
  Transmission Date: 20120825
  Serious: Yes (Other)
  Sender: FDA-Public Use
  Company Number: US-ASTRAZENECA-2012SE37214

PATIENT
  Age: 55 Year
  Sex: Male

DRUGS (3)
  1. PRILOSEC [Suspect]
     Route: 048
  2. NEXIUM [Suspect]
     Route: 048
  3. PRILOSEC [Suspect]
     Route: 048

REACTIONS (5)
  - WEIGHT DECREASED [None]
  - TESTIS CANCER [None]
  - INTENTIONAL DRUG MISUSE [None]
  - APHAGIA [None]
  - DRUG INEFFECTIVE [None]
